FAERS Safety Report 22658044 (Version 6)
Quarter: 2024Q1

REPORT INFORMATION
  Report Type: Spontaneous
  Country: AT (occurrence: AT)
  Receive Date: 20230630
  Receipt Date: 20240223
  Transmission Date: 20240410
  Serious: Yes (Hospitalization, Other)
  Sender: FDA-Public Use
  Company Number: AT-ROCHE-3017431

PATIENT
  Age: 47 Year
  Sex: Female
  Weight: 58 kg

DRUGS (68)
  1. CAPECITABINE [Suspect]
     Active Substance: CAPECITABINE
     Indication: HER2 positive breast cancer
     Dosage: 500 MG, FREQUENCY: OTHER SIX TIMES A DAY FOR 14 DAYS, 7 DAYS BREAK?DAILY DOSE: 3000 MILLIGRAM
     Route: 048
     Dates: start: 20200923, end: 20201220
  2. CAPECITABINE [Suspect]
     Active Substance: CAPECITABINE
     Indication: HER2 positive breast cancer
     Dosage: 0.25 DAYS?500 MG, FOUR TIMES A DAY?DAILY DOSE: 2000 MILLIGRAM
     Route: 048
     Dates: start: 20210109, end: 20211209
  3. ADO-TRASTUZUMAB EMTANSINE [Suspect]
     Active Substance: ADO-TRASTUZUMAB EMTANSINE
     Indication: HER2 positive breast cancer
     Dosage: 1 TIMES IN 3 WEEK
     Route: 042
     Dates: start: 20191014, end: 20200518
  4. ADO-TRASTUZUMAB EMTANSINE [Suspect]
     Active Substance: ADO-TRASTUZUMAB EMTANSINE
     Indication: HER2 positive breast cancer
     Dosage: 1 TIMES IN 3 WEEK
     Route: 042
     Dates: start: 20200703, end: 20200703
  5. TRASTUZUMAB [Suspect]
     Active Substance: TRASTUZUMAB
     Indication: HER2 positive breast cancer
     Dosage: 1 TIMES IN 3 WEEK
     Route: 042
     Dates: start: 20190724, end: 20190912
  6. TRASTUZUMAB [Suspect]
     Active Substance: TRASTUZUMAB
     Indication: HER2 positive breast cancer
     Dosage: 1 TIMES IN 3 WEEK
     Route: 042
     Dates: end: 20230206
  7. PERTUZUMAB [Suspect]
     Active Substance: PERTUZUMAB
     Indication: HER2 positive breast cancer
     Dosage: 1 TIMES IN 3 WEEKS
     Route: 042
     Dates: start: 20190724, end: 20190912
  8. PACLITAXEL [Suspect]
     Active Substance: PACLITAXEL
     Indication: HER2 positive breast cancer
     Dosage: 1 TIMES IN 3 WEEK
     Route: 042
     Dates: start: 20190724, end: 20190912
  9. LAPATINIB [Suspect]
     Active Substance: LAPATINIB
     Indication: HER2 positive breast cancer
     Dosage: MOST RECENT DOSE PRIOR TO THE EVENT: 09/JAN/2021?250 MG, 5 TIMES DAILY?DAILY DOSE: 1250 MILLIGRAM
     Route: 048
     Dates: start: 20200923, end: 20201228
  10. LAPATINIB [Suspect]
     Active Substance: LAPATINIB
     Indication: HER2 positive breast cancer
     Dosage: 4 TIMES IN 1 DAY?DAILY DOSE: 1000 MILLIGRAM
     Route: 048
     Dates: start: 20210109, end: 20211216
  11. FAM-TRASTUZUMAB DERUXTECAN-NXKI [Suspect]
     Active Substance: FAM-TRASTUZUMAB DERUXTECAN-NXKI
     Indication: HER2 positive breast cancer
     Dosage: MOST RECENT DOSE PRIOR TO AE 31/JAN/2022?1 TIMES IN 3 WEEK
     Route: 042
     Dates: start: 20220110, end: 20220131
  12. FAM-TRASTUZUMAB DERUXTECAN-NXKI [Suspect]
     Active Substance: FAM-TRASTUZUMAB DERUXTECAN-NXKI
     Indication: HER2 positive breast cancer
     Route: 042
     Dates: start: 20220324, end: 20220324
  13. FAM-TRASTUZUMAB DERUXTECAN-NXKI [Suspect]
     Active Substance: FAM-TRASTUZUMAB DERUXTECAN-NXKI
     Indication: HER2 positive breast cancer
     Route: 042
     Dates: start: 20220419
  14. TUCATINIB [Suspect]
     Active Substance: TUCATINIB
     Dosage: MOST RECENT DOSE PRIOR TO THE EVENT: 22/JAN/2023
     Route: 048
     Dates: start: 20230102
  15. LOPERAMIDE HYDROCHLORIDE [Concomitant]
     Active Substance: LOPERAMIDE HYDROCHLORIDE
     Indication: Diarrhoea
     Dosage: PRN
     Route: 048
     Dates: start: 20210215
  16. LENDORM [Concomitant]
     Active Substance: BROTIZOLAM
     Indication: Insomnia
     Dosage: PRN
     Route: 048
     Dates: start: 20211229, end: 20211229
  17. HYDROMORPHONE HYDROCHLORIDE [Concomitant]
     Active Substance: HYDROMORPHONE HYDROCHLORIDE
     Dosage: 2 TIMES IN 1 DAY
     Route: 048
     Dates: start: 20190716, end: 20200927
  18. HYDROMORPHONE HYDROCHLORIDE [Concomitant]
     Active Substance: HYDROMORPHONE HYDROCHLORIDE
     Dosage: PRN
     Route: 048
     Dates: start: 20190716
  19. HYDROMORPHONE HYDROCHLORIDE [Concomitant]
     Active Substance: HYDROMORPHONE HYDROCHLORIDE
     Dosage: 2 TIMES IN 1 DAY
     Route: 048
     Dates: start: 20220207
  20. SUCRALAN [Concomitant]
     Dosage: PRN
     Route: 048
     Dates: start: 20190701
  21. ACETAMINOPHEN [Concomitant]
     Active Substance: ACETAMINOPHEN
     Dosage: PRN
     Route: 048
     Dates: start: 20190701
  22. CITALOPRAM [Concomitant]
     Active Substance: CITALOPRAM HYDROBROMIDE
     Dosage: ONGOING = CHECKED
     Route: 048
     Dates: start: 20190715
  23. ALPRAZOLAM [Concomitant]
     Active Substance: ALPRAZOLAM
     Dosage: PRN
     Route: 048
     Dates: start: 20190715
  24. CEOLAT [Concomitant]
     Dosage: OTHER UP TO 3 X DAILY 10 ML
     Route: 048
     Dates: start: 20190815
  25. POLYETHYLENE GLYCOL 4000 [Concomitant]
     Active Substance: POLYETHYLENE GLYCOL 4000
     Dosage: ONGOING = CHECKED
     Route: 048
     Dates: start: 20190705
  26. CALCIDURAN [ASCORBIC ACID;CALCIUM PHOSPHATE;CITRIC ACID;COLECALCIFEROL [Concomitant]
     Dosage: ONGOING = CHECKED
     Route: 048
     Dates: start: 20190717
  27. DRONABINOL [Concomitant]
     Active Substance: DRONABINOL
     Dosage: 2 DROP-2 DROP-2 DROP
     Route: 048
     Dates: start: 20190716, end: 20210804
  28. DRONABINOL [Concomitant]
     Active Substance: DRONABINOL
     Dosage: ONGOING = CHECKED
     Route: 048
     Dates: start: 20210705
  29. ZOFRAN [Concomitant]
     Active Substance: ONDANSETRON HYDROCHLORIDE
     Indication: COVID-19
     Dosage: PRN
     Route: 048
     Dates: start: 20190701
  30. ZOFRAN [Concomitant]
     Active Substance: ONDANSETRON HYDROCHLORIDE
     Indication: COVID-19
     Dosage: PRN
     Route: 042
     Dates: start: 20190704, end: 20200703
  31. ZOFRAN [Concomitant]
     Active Substance: ONDANSETRON HYDROCHLORIDE
     Indication: COVID-19
     Dosage: 2 TIMES IN 1 DAY
     Route: 067
     Dates: start: 20190705, end: 20190914
  32. ZOFRAN [Concomitant]
     Active Substance: ONDANSETRON HYDROCHLORIDE
     Indication: COVID-19
     Route: 048
     Dates: start: 20210302, end: 20210302
  33. ZOFRAN [Concomitant]
     Active Substance: ONDANSETRON HYDROCHLORIDE
     Indication: COVID-19
     Dosage: ONGOING = CHECKED?1 TIMES IN 3 WEEK
     Route: 042
     Dates: start: 20220110
  34. PANTOPRAZOLE SODIUM [Concomitant]
     Active Substance: PANTOPRAZOLE SODIUM
     Indication: COVID-19
     Dosage: ONGOING = CHECKED
     Route: 048
     Dates: start: 20190701
  35. PANTOPRAZOLE SODIUM [Concomitant]
     Active Substance: PANTOPRAZOLE SODIUM
     Indication: COVID-19
     Dosage: ONGOING = CHECKED
     Route: 048
     Dates: start: 20210222, end: 20210302
  36. PANTOPRAZOLE SODIUM [Concomitant]
     Active Substance: PANTOPRAZOLE SODIUM
     Indication: COVID-19
     Dosage: ONGOING = CHECKED
     Dates: start: 20210302, end: 20210303
  37. EUTHYROX [Concomitant]
     Active Substance: LEVOTHYROXINE SODIUM
     Route: 048
     Dates: start: 20190703, end: 20200929
  38. EUTHYROX [Concomitant]
     Active Substance: LEVOTHYROXINE SODIUM
     Route: 048
     Dates: start: 20200930, end: 20210108
  39. EUTHYROX [Concomitant]
     Active Substance: LEVOTHYROXINE SODIUM
     Route: 048
     Dates: end: 201906
  40. OLANZAPINE [Concomitant]
     Active Substance: OLANZAPINE
     Dosage: OTHER 0-0-1/2
     Route: 048
     Dates: start: 20190821, end: 20190904
  41. OLANZAPINE [Concomitant]
     Active Substance: OLANZAPINE
     Dosage: OTHER 0-0-1/2
     Route: 048
     Dates: start: 20190904, end: 20200926
  42. DEXAMETHASONE [Concomitant]
     Active Substance: DEXAMETHASONE
     Indication: COVID-19
     Route: 042
     Dates: start: 20190704, end: 20190912
  43. DEXAMETHASONE [Concomitant]
     Active Substance: DEXAMETHASONE
     Indication: COVID-19
     Route: 048
     Dates: start: 20190705, end: 20190914
  44. DEXAMETHASONE [Concomitant]
     Active Substance: DEXAMETHASONE
     Indication: COVID-19
     Route: 048
     Dates: start: 20210302, end: 20210304
  45. DEXAMETHASONE [Concomitant]
     Active Substance: DEXAMETHASONE
     Indication: COVID-19
     Dates: start: 20211229, end: 20220110
  46. DEXAMETHASONE [Concomitant]
     Active Substance: DEXAMETHASONE
     Indication: COVID-19
     Route: 042
     Dates: start: 20220110
  47. DEXAMETHASONE [Concomitant]
     Active Substance: DEXAMETHASONE
     Indication: COVID-19
     Dates: start: 20220111, end: 20220112
  48. DEXAMETHASONE [Concomitant]
     Active Substance: DEXAMETHASONE
     Indication: COVID-19
     Dates: start: 20220113, end: 20220114
  49. DEXAMETHASONE [Concomitant]
     Active Substance: DEXAMETHASONE
     Indication: COVID-19
     Dates: start: 20220115, end: 20220323
  50. DEXAMETHASONE [Concomitant]
     Active Substance: DEXAMETHASONE
     Indication: COVID-19
     Route: 048
     Dates: start: 20220622
  51. ACETAMINOPHEN [Concomitant]
     Active Substance: ACETAMINOPHEN
     Indication: COVID-19
     Dosage: PRN (AS NEEDED)
     Route: 048
     Dates: start: 20210302, end: 20210303
  52. TRAZODONE HYDROCHLORIDE [Concomitant]
     Active Substance: TRAZODONE HYDROCHLORIDE
     Route: 048
     Dates: start: 20190716, end: 20200926
  53. VALACYCLOVIR HYDROCHLORIDE [Concomitant]
     Active Substance: VALACYCLOVIR HYDROCHLORIDE
     Route: 048
     Dates: start: 20190716, end: 20191011
  54. NEURONTIN [Concomitant]
     Active Substance: GABAPENTIN
     Dosage: 2 TIMES IN 1 DAY
     Route: 048
     Dates: start: 201908, end: 201908
  55. AMOXICILLIN\CLAVULANATE POTASSIUM [Concomitant]
     Active Substance: AMOXICILLIN\CLAVULANATE POTASSIUM
     Indication: Influenza
     Dosage: 2 TIMES IN 1 DAY
     Route: 048
     Dates: start: 20200527, end: 20200602
  56. LOVENOX [Concomitant]
     Active Substance: ENOXAPARIN SODIUM
     Indication: COVID-19
     Route: 030
     Dates: start: 20210302, end: 20210305
  57. URSODIOL [Concomitant]
     Active Substance: URSODIOL
     Indication: Gamma-glutamyltransferase increased
     Dates: start: 20220401
  58. NEULASTA [Concomitant]
     Active Substance: PEGFILGRASTIM
     Dates: start: 20220420
  59. EMEND [Concomitant]
     Active Substance: APREPITANT
     Route: 048
     Dates: start: 20220621
  60. EMEND [Concomitant]
     Active Substance: APREPITANT
     Route: 048
     Dates: start: 20220621
  61. PFIZER-BIONTECH COVID-19 VACCINE [Concomitant]
     Active Substance: TOZINAMERAN
     Dates: start: 20220125, end: 20220125
  62. ORNITHINE ASPARTATE [Concomitant]
     Active Substance: ORNITHINE ASPARTATE
     Dates: start: 20220401, end: 20220419
  63. UNASYN [Concomitant]
     Active Substance: AMPICILLIN SODIUM\SULBACTAM SODIUM
     Dates: start: 20220919
  64. FERRETAB [Concomitant]
  65. LACTULOSE [Concomitant]
     Active Substance: LACTULOSE
  66. XGEVA [Concomitant]
     Active Substance: DENOSUMAB
     Dates: start: 20191011
  67. LEVOTHYROXINE SODIUM [Concomitant]
     Active Substance: LEVOTHYROXINE SODIUM
  68. FILGRASTIM [Concomitant]
     Active Substance: FILGRASTIM
     Dates: start: 20220420, end: 20220421

REACTIONS (18)
  - Intracranial pressure increased [Recovered/Resolved]
  - Gamma-glutamyltransferase increased [Recovered/Resolved]
  - Iron deficiency anaemia [Recovered/Resolved]
  - Insomnia [Not Recovered/Not Resolved]
  - Vascular device infection [Recovered/Resolved]
  - COVID-19 [Recovered/Resolved]
  - COVID-19 [Recovered/Resolved]
  - COVID-19 [Recovered/Resolved]
  - Diarrhoea [Recovered/Resolved]
  - Thrombocytopenia [Not Recovered/Not Resolved]
  - Asthenia [Recovered/Resolved]
  - General physical health deterioration [Recovered/Resolved]
  - Blood bilirubin increased [Recovered/Resolved]
  - Aphthous ulcer [Recovered/Resolved]
  - Neutropenia [Recovered/Resolved]
  - Blood bilirubin increased [Recovered/Resolved]
  - Platelet count decreased [Recovered/Resolved]
  - Neutrophil count decreased [Recovered/Resolved]

NARRATIVE: CASE EVENT DATE: 20201228
